FAERS Safety Report 11744645 (Version 1)
Quarter: 2015Q4

REPORT INFORMATION
  Report Type: Report from Study
  Country: US (occurrence: US)
  Receive Date: 20151116
  Receipt Date: 20151116
  Transmission Date: 20160304
  Serious: Yes (Hospitalization)
  Sender: FDA-Public Use
  Company Number: US-BAXALTA-2015BAX019794

PATIENT
  Age: 21 Year
  Sex: Male
  Weight: 63.1 kg

DRUGS (4)
  1. PEGYLATED COAGULATION FACTOR VIII [Suspect]
     Active Substance: RURIOCTOCOG ALFA PEGOL
     Dosage: EVERY 3 DAYS
     Dates: start: 20150406, end: 20150406
  2. PEGYLATED COAGULATION FACTOR VIII [Suspect]
     Active Substance: RURIOCTOCOG ALFA PEGOL
     Dosage: EVERY 3 DAYS
     Route: 042
     Dates: start: 20141114, end: 20141114
  3. PEGYLATED COAGULATION FACTOR VIII [Suspect]
     Active Substance: RURIOCTOCOG ALFA PEGOL
     Dosage: EVERY 3 DAYS
     Dates: start: 20150406, end: 20150406
  4. PEGYLATED COAGULATION FACTOR VIII [Suspect]
     Active Substance: RURIOCTOCOG ALFA PEGOL
     Indication: FACTOR VIII DEFICIENCY
     Dosage: EVERY 3 DAYS
     Route: 042
     Dates: start: 20141114, end: 20141114

REACTIONS (1)
  - Device related sepsis [Recovered/Resolved]

NARRATIVE: CASE EVENT DATE: 20150406
